FAERS Safety Report 4985199-0 (Version None)
Quarter: 2006Q1

REPORT INFORMATION
  Report Type: 
  Country: None (occurrence: None)
  Receive Date: 20060309
  Receipt Date: 20050617
  Transmission Date: 20060701
  Serious: Yes (Other)
  Sender: FDA-Public Use
  Company Number: 408718

PATIENT
  Sex: Male

DRUGS (2)
  1. ACCUTANE [Suspect]
     Indication: ACNE CYSTIC
     Dates: start: 19910615, end: 19940615
  2. ANUSOL (BENZYL BENZOATE/BISMUTH RESORCINOL/BISMUTH SUBGALLATE/PERUVIAN [Concomitant]

REACTIONS (1)
  - NORMAL NEWBORN [None]
